FAERS Safety Report 12549362 (Version 1)
Quarter: 2016Q3

REPORT INFORMATION
  Report Type: Spontaneous
  Country: US (occurrence: US)
  Receive Date: 20160712
  Receipt Date: 20160712
  Transmission Date: 20161109
  Serious: No
  Sender: FDA-Public Use
  Company Number: US-ALLERGAN-1650981US

PATIENT
  Sex: Male

DRUGS (2)
  1. DALVANCE [Suspect]
     Active Substance: DALBAVANCIN
     Dosage: 500 MG, SINGLE
     Route: 042
     Dates: start: 201512, end: 201512
  2. DALVANCE [Suspect]
     Active Substance: DALBAVANCIN
     Indication: SKIN BACTERIAL INFECTION
     Dosage: 1000 MG, SINGLE
     Route: 042
     Dates: start: 201512, end: 201512

REACTIONS (1)
  - Nausea [Recovered/Resolved]
